FAERS Safety Report 10667500 (Version 1)
Quarter: 2014Q4

REPORT INFORMATION
  Report Type: Spontaneous
  Country: AU (occurrence: None)
  Receive Date: 20141218
  Receipt Date: 20141218
  Transmission Date: 20150529
  Serious: Yes (Other)
  Sender: FDA-Public Use
  Company Number: 2014AU010634

PATIENT
  Age: 69 Year
  Sex: Male

DRUGS (1)
  1. ELIGARD [Suspect]
     Active Substance: LEUPROLIDE ACETATE
     Indication: PROSTATE CANCER
     Dosage: 22.5 MG, Q3MONTHS, UNKNOWN
     Dates: start: 20141121

REACTIONS (7)
  - Wheelchair user [None]
  - Emotional distress [None]
  - Dysarthria [None]
  - Tremor [None]
  - Gait disturbance [None]
  - Condition aggravated [None]
  - Musculoskeletal disorder [None]
